FAERS Safety Report 10120869 (Version 4)
Quarter: 2014Q2

REPORT INFORMATION
  Report Type: Spontaneous
  Country: IT (occurrence: IT)
  Receive Date: 20140425
  Receipt Date: 20140624
  Transmission Date: 20141212
  Serious: Yes (Other)
  Sender: FDA-Public Use
  Company Number: IT-PFIZER INC-2014111894

PATIENT
  Age: 43 Year
  Sex: Female

DRUGS (3)
  1. DOSTINEX [Suspect]
     Indication: HYPERPROLACTINAEMIA
     Dosage: 0.5 MG, 1X/DAY
     Route: 048
     Dates: start: 201310
  2. DOSTINEX [Suspect]
     Dosage: 0.25 MG, ALTERNATE DAY
     Route: 048
     Dates: start: 20140201, end: 20140324
  3. DOSTINEX [Suspect]
     Dosage: 0.5 MG, ALTERNATE DAY
     Route: 048
     Dates: start: 20140325, end: 20140331

REACTIONS (4)
  - Acute psychosis [Recovering/Resolving]
  - Psychotic disorder [Recovering/Resolving]
  - Hallucination [Recovering/Resolving]
  - Blood prolactin increased [Unknown]
